FAERS Safety Report 10005821 (Version 2)
Quarter: 2014Q1

REPORT INFORMATION
  Report Type: Spontaneous
  Country: BR (occurrence: BR)
  Receive Date: 20140313
  Receipt Date: 20140313
  Transmission Date: 20141002
  Serious: Yes (Other)
  Sender: FDA-Public Use
  Company Number: BR-AMGEN-BRACT2011068394

PATIENT
  Age: 43 Year
  Sex: Female
  Weight: 85 kg

DRUGS (14)
  1. ENBREL [Suspect]
     Indication: PSORIATIC ARTHROPATHY
     Dosage: 50 MG, QWK
     Route: 058
     Dates: start: 20110909
  2. ENBREL [Suspect]
     Indication: RHEUMATOID ARTHRITIS
     Dosage: UNK
     Route: 065
  3. ENBREL [Suspect]
     Dosage: 50 MG, QWK
     Route: 058
     Dates: start: 201109
  4. GARDENAL                           /00023201/ [Concomitant]
     Dosage: 50 MG, ONCE AT NIGHT
     Dates: start: 1972
  5. EUTHYROX [Concomitant]
     Indication: THYROID DISORDER
     Dosage: 50 MG, 1 TABLET PER DAY
     Dates: start: 2011
  6. EUTHYROX [Concomitant]
     Indication: HYPOTHYROIDISM
     Dosage: UNK
  7. HIDANTAL [Concomitant]
     Indication: CONVULSION
     Dosage: 100 MG, 1X/DAY
     Dates: start: 1972
  8. CELESTONE                          /00008501/ [Concomitant]
     Dosage: 2 MG, 1X/DAY
  9. LOSARTAN [Concomitant]
     Indication: HYPERTENSION
     Dosage: 1 TABLET PER DAY
     Dates: start: 2012
  10. CELESTAMINE                        /00252801/ [Concomitant]
     Dosage: UNK UNK, QD
  11. ROXFLAN [Concomitant]
     Indication: HYPERTENSION
     Dosage: 5 MG, 1 TABLET PER DAY
     Dates: start: 201209
  12. FLUXTAR [Concomitant]
     Dosage: UNK UNK, QD
     Dates: start: 201209
  13. FLUX                               /00168201/ [Concomitant]
     Indication: HYPERTENSION
     Dosage: 1.5 MG, 1 TABLET A DAY
  14. DEXCHLORPHENIRAMINE MALEATE [Concomitant]
     Dosage: UNK

REACTIONS (10)
  - Fall [Unknown]
  - Bedridden [Not Recovered/Not Resolved]
  - Limb injury [Unknown]
  - Drug administration error [Unknown]
  - Pruritus [Not Recovered/Not Resolved]
  - Incorrect dose administered [Unknown]
  - Ear infection [Unknown]
  - Application site vesicles [Unknown]
  - Application site erythema [Unknown]
  - Application site pruritus [Unknown]
